FAERS Safety Report 24205771 (Version 1)
Quarter: 2024Q3

REPORT INFORMATION
  Report Type: Spontaneous
  Country: US (occurrence: None)
  Receive Date: 20240812
  Receipt Date: 20240812
  Transmission Date: 20241017
  Serious: Yes (Hospitalization)
  Sender: Public
  Company Number: None

PATIENT
  Age: 42 Year
  Sex: Female
  Weight: 56.25 kg

DRUGS (1)
  1. BOTOX [Suspect]
     Active Substance: ONABOTULINUMTOXINA
     Dosage: OTHER FREQUENCY : ONCE;?
     Route: 058
     Dates: start: 20240802, end: 20240802

REACTIONS (9)
  - Pyrexia [None]
  - Chills [None]
  - Injection site swelling [None]
  - Vision blurred [None]
  - Vision blurred [None]
  - Dysphonia [None]
  - Dyspnoea [None]
  - Dysphagia [None]
  - Asthenopia [None]

NARRATIVE: CASE EVENT DATE: 20240810
